FAERS Safety Report 22344846 (Version 1)
Quarter: 2023Q2

REPORT INFORMATION
  Report Type: Spontaneous
  Country: US (occurrence: None)
  Receive Date: 20230518
  Receipt Date: 20230518
  Transmission Date: 20230722
  Serious: Yes (Other)
  Sender: FDA-Public Use
  Company Number: None

PATIENT
  Age: 51 Year
  Sex: Female
  Weight: 59.42 kg

DRUGS (1)
  1. TERIFLUNOMIDE [Suspect]
     Active Substance: TERIFLUNOMIDE
     Indication: Multiple sclerosis
     Dosage: FREQUENCY : DAILY;?
     Route: 048
     Dates: start: 20230426, end: 20230426

REACTIONS (6)
  - Malaise [None]
  - Dizziness [None]
  - Feeling abnormal [None]
  - Nausea [None]
  - Euphoric mood [None]
  - Fatigue [None]

NARRATIVE: CASE EVENT DATE: 20230426
